FAERS Safety Report 7820547-5 (Version None)
Quarter: 2011Q4

REPORT INFORMATION
  Report Type: 
  Country: None (occurrence: None)
  Receive Date: 20111018
  Receipt Date: 20111007
  Transmission Date: 20120403
  Serious: Yes (Other)
  Sender: FDA-Public Use
  Company Number: PHHY2011BR89330

PATIENT
  Sex: Male

DRUGS (1)
  1. EXFORGE [Suspect]
     Dosage: 1 DF, (160/5 MG)

REACTIONS (2)
  - DRUG ADMINISTRATION ERROR [None]
  - CEREBROVASCULAR ACCIDENT [None]
